FAERS Safety Report 25983401 (Version 1)
Quarter: 2025Q4

REPORT INFORMATION
  Report Type: Report from Study
  Country: US (occurrence: US)
  Receive Date: 20251031
  Receipt Date: 20251031
  Transmission Date: 20260118
  Serious: Yes (Other)
  Sender: EMD SERONO INC
  Company Number: US-Merck Healthcare KGaA-2025041684

PATIENT
  Age: 67 Year
  Sex: Female

DRUGS (1)
  1. REBIF [Suspect]
     Active Substance: INTERFERON BETA-1A
     Indication: Multiple sclerosis

REACTIONS (17)
  - Cervical cord compression [Recovered/Resolved]
  - Spinal artery thrombosis [Recovered/Resolved]
  - Magnetic resonance imaging abnormal [Unknown]
  - Spinal disorder [Recovering/Resolving]
  - Limb discomfort [Recovering/Resolving]
  - Impaired healing [Unknown]
  - Pruritus [Recovering/Resolving]
  - Muscular weakness [Recovering/Resolving]
  - Fall [Recovered/Resolved]
  - Rhinitis [Unknown]
  - Head injury [Unknown]
  - Headache [Unknown]
  - Paraesthesia [Unknown]
  - Face injury [Unknown]
  - Swelling face [Unknown]
  - Eye contusion [Unknown]
  - Arthritis [Unknown]

NARRATIVE: CASE EVENT DATE: 20250528
